FAERS Safety Report 4427363-5 (Version None)
Quarter: 2004Q3

REPORT INFORMATION
  Report Type: 
  Country: None (occurrence: None)
  Receive Date: 20040816
  Receipt Date: 20040816
  Transmission Date: 20050211
  Serious: No
  Sender: FDA-Public Use
  Company Number: None

PATIENT
  Age: 24 Year
  Sex: Female
  Weight: 13.1 kg

DRUGS (1)
  1. CARBOPLATIN [Suspect]
     Indication: OPTIC NERVE GLIOMA
     Dosage: 98 MG IV
     Route: 042
     Dates: start: 20040806

REACTIONS (3)
  - NAUSEA [None]
  - RASH [None]
  - VOMITING [None]
